FAERS Safety Report 5444273-5 (Version None)
Quarter: 2007Q3

REPORT INFORMATION
  Report Type: 
  Country: None (occurrence: None)
  Receive Date: 20070906
  Receipt Date: 20070830
  Transmission Date: 20080115
  Serious: Yes (Hospitalization)
  Sender: FDA-Public Use
  Company Number: US-BAYER-200711639BWH

PATIENT
  Age: 74 Year
  Sex: Female

DRUGS (12)
  1. NEXAVAR [Suspect]
     Indication: METASTATIC RENAL CELL CARCINOMA
     Dosage: TOTAL DAILY DOSE: 800 MG  UNIT DOSE: 200 MG
     Route: 048
     Dates: start: 20070502, end: 20070522
  2. ZOMETA [Suspect]
     Route: 042
     Dates: start: 20041101, end: 20070521
  3. ARICEPT [Concomitant]
  4. GLYBURIDE [Concomitant]
  5. STARLIX [Concomitant]
     Dosage: TOTAL DAILY DOSE: 60 MG  UNIT DOSE: 120 MG
  6. PROTONIX [Concomitant]
  7. LISINOPRIL [Concomitant]
     Dosage: TOTAL DAILY DOSE: 5 MG  UNIT DOSE: 10 MG
  8. ARANESP [Concomitant]
  9. VICODIN [Concomitant]
  10. FERROUS SULFATE TAB [Concomitant]
  11. TICLID [Concomitant]
  12. LABETALOL HCL [Concomitant]

REACTIONS (16)
  - ANOREXIA [None]
  - ARTHRALGIA [None]
  - CONSTIPATION [None]
  - FATIGUE [None]
  - HYPERKALAEMIA [None]
  - HYPOGLYCAEMIA [None]
  - HYPOTENSION [None]
  - LOSS OF CONSCIOUSNESS [None]
  - MENTAL STATUS CHANGES [None]
  - METABOLIC ACIDOSIS [None]
  - PAIN IN EXTREMITY [None]
  - RENAL FAILURE ACUTE [None]
  - RHABDOMYOLYSIS [None]
  - SUBARACHNOID HAEMORRHAGE [None]
  - SUBDURAL HAEMATOMA [None]
  - VOMITING [None]
